FAERS Safety Report 10464149 (Version 1)
Quarter: 2014Q3

REPORT INFORMATION
  Report Type: Spontaneous
  Country: US (occurrence: None)
  Receive Date: 20140918
  Receipt Date: 20140918
  Transmission Date: 20150326
  Serious: No
  Sender: FDA-Public Use
  Company Number: None

PATIENT
  Sex: Female

DRUGS (1)
  1. VELCADE [Suspect]
     Active Substance: BORTEZOMIB
     Indication: PLASMA CELL MYELOMA
     Dosage: SUBCUTANEOUS?FALL 2012 FOR ^SEVERAL MONTHS^
     Route: 058
     Dates: start: 2012

REACTIONS (3)
  - Muscular weakness [None]
  - Hypoaesthesia [None]
  - Neuropathy peripheral [None]
